FAERS Safety Report 8234772-5 (Version None)
Quarter: 2012Q1

REPORT INFORMATION
  Report Type: 
  Country: None (occurrence: None)
  Receive Date: 20120321
  Receipt Date: 20120312
  Transmission Date: 20120608
  Serious: No
  Sender: FDA-Public Use
  Company Number: 2012SP013125

PATIENT
  Age: 37 Year
  Sex: Female

DRUGS (3)
  1. RISPERIDONE [Concomitant]
  2. SYCREST (ASENAPINE / 05706901/ ) [Suspect]
     Indication: SCHIZOAFFECTIVE DISORDER
     Dosage: 10 MG;BID;SL
     Route: 060
     Dates: start: 20120201, end: 20120303
  3. BENZODIAZEPINE [Concomitant]

REACTIONS (2)
  - DRUG HYPERSENSITIVITY [None]
  - OFF LABEL USE [None]
